FAERS Safety Report 12529971 (Version 1)
Quarter: 2016Q3

REPORT INFORMATION
  Report Type: Spontaneous
  Country: US (occurrence: None)
  Receive Date: 20160705
  Receipt Date: 20160705
  Transmission Date: 20161109
  Serious: No
  Sender: FDA-Public Use
  Company Number: None

PATIENT
  Age: 32 Year
  Sex: Male
  Weight: 74.84 kg

DRUGS (4)
  1. BUSPIRONE [Concomitant]
     Active Substance: BUSPIRONE HYDROCHLORIDE
  2. BUPROPION. [Concomitant]
     Active Substance: BUPROPION
  3. TESTOSTERONE  CYPLONATE [Concomitant]
  4. OXCARBAZEPINE. [Suspect]
     Active Substance: OXCARBAZEPINE
     Indication: BIPOLAR DISORDER
     Route: 048

REACTIONS (8)
  - Sleep disorder [None]
  - Depression [None]
  - Poor quality sleep [None]
  - Mania [None]
  - Hypomania [None]
  - Drug ineffective [None]
  - Initial insomnia [None]
  - Product substitution issue [None]

NARRATIVE: CASE EVENT DATE: 20160618
